FAERS Safety Report 6154809-7 (Version None)
Quarter: 2009Q2

REPORT INFORMATION
  Report Type: 
  Country: None (occurrence: None)
  Receive Date: 20090414
  Receipt Date: 20090409
  Transmission Date: 20091009
  Serious: Yes (Life-Threatening, Other)
  Sender: FDA-Public Use
  Company Number: PHHY2009FR13834

PATIENT
  Age: 80 Year
  Sex: Female

DRUGS (3)
  1. EXELON [Suspect]
     Indication: DEMENTIA ALZHEIMER'S TYPE
     Dosage: 4.6 MG/DAY
     Route: 062
     Dates: start: 20081001
  2. EXELON [Interacting]
     Dosage: 9.5 MG/DAY
     Route: 062
  3. TENORMIN [Interacting]
     Indication: HYPERTENSION
     Dosage: 1 DF, QD

REACTIONS (3)
  - SHOCK [None]
  - SINUS ARREST [None]
  - SINUS DISORDER [None]
